FAERS Safety Report 4488148-7 (Version None)
Quarter: 2004Q4

REPORT INFORMATION
  Report Type: 
  Country: None (occurrence: None)
  Receive Date: 20041028
  Receipt Date: 20041019
  Transmission Date: 20050328
  Serious: Yes (Death)
  Sender: FDA-Public Use
  Company Number: US-BRISTOL-MYERS SQUIBB COMPANY-12741450

PATIENT
  Age: 49 Year

DRUGS (3)
  1. ARIPIPRAZOLE [Suspect]
     Route: 048
  2. PAROXETINE [Suspect]
     Route: 048
  3. OLANZAPINE [Suspect]
     Route: 048

REACTIONS (1)
  - COMPLETED SUICIDE [None]
